FAERS Safety Report 16809976 (Version 3)
Quarter: 2020Q1

REPORT INFORMATION
  Report Type: Report from Study
  Country: CO (occurrence: CO)
  Receive Date: 20190916
  Receipt Date: 20200226
  Transmission Date: 20200409
  Serious: Yes (Hospitalization, Other)
  Sender: FDA-Public Use
  Company Number: CO-ASTELLAS-2018US045030

PATIENT
  Age: 41 Year
  Sex: Male

DRUGS (19)
  1. TACROLIMUS. [Suspect]
     Active Substance: TACROLIMUS
     Indication: PROPHYLAXIS AGAINST TRANSPLANT REJECTION
     Dosage: 3 MG (3 CAPSULE OF 1 MG), ONCE DAILY
     Route: 048
     Dates: start: 20120601, end: 201907
  2. METOPROLOL. [Concomitant]
     Active Substance: METOPROLOL
     Indication: HYPERTENSION
     Route: 048
  3. METOPROLOL. [Concomitant]
     Active Substance: METOPROLOL
     Route: 048
  4. DELTASOL [Concomitant]
     Indication: PRODUCT USED FOR UNKNOWN INDICATION
     Route: 048
  5. LOVASTATIN. [Concomitant]
     Active Substance: LOVASTATIN
     Indication: BLOOD GLUCOSE INCREASED
  6. TACROLIMUS. [Suspect]
     Active Substance: TACROLIMUS
     Indication: RENAL TRANSPLANT
     Route: 048
     Dates: start: 20070422
  7. TACROLIMUS. [Suspect]
     Active Substance: TACROLIMUS
     Dosage: 8 MG, ONCE DAILY (3 CAPSULE OF 1 MG AND 1 CAPSULE OF 5MG)
     Route: 048
     Dates: start: 20190710
  8. CLONIDINE. [Concomitant]
     Active Substance: CLONIDINE
     Route: 048
  9. OMEPRAZOLE. [Concomitant]
     Active Substance: OMEPRAZOLE
     Indication: GASTRITIS
     Route: 065
     Dates: start: 2001
  10. ENALAPRIL [Concomitant]
     Active Substance: ENALAPRIL
     Route: 048
  11. BECLAZONE [Concomitant]
     Indication: LUNG DISORDER
     Route: 048
     Dates: start: 20070422
  12. MINOXIDIL. [Concomitant]
     Active Substance: MINOXIDIL
     Indication: HYPERTENSION
     Route: 048
     Dates: start: 20070422
  13. ENALAPRIL [Concomitant]
     Active Substance: ENALAPRIL
     Indication: BLOOD PRESSURE MEASUREMENT
     Dosage: UNK UNK, TWICE DAILY
     Route: 048
  14. LOVASTATIN. [Concomitant]
     Active Substance: LOVASTATIN
     Indication: BLOOD CHOLESTEROL INCREASED
     Route: 048
     Dates: start: 2019
  15. MYCOPHENOLATE [Concomitant]
     Active Substance: MYCOPHENOLIC ACID
     Indication: RENAL TRANSPLANT
     Route: 048
     Dates: start: 20170422
  16. DEFLAZACORT [Concomitant]
     Active Substance: DEFLAZACORT
     Indication: LUNG DISORDER
     Route: 048
     Dates: start: 2007
  17. TACROLIMUS. [Suspect]
     Active Substance: TACROLIMUS
     Route: 048
  18. MYCOPHENOLATE [Concomitant]
     Active Substance: MYCOPHENOLIC ACID
     Indication: IMMUNOSUPPRESSANT DRUG THERAPY
     Route: 048
     Dates: start: 20070422
  19. CLONIDINE. [Concomitant]
     Active Substance: CLONIDINE
     Indication: HYPERTENSION
     Dosage: 3 DF, EVERY12 HOURS
     Route: 048
     Dates: start: 20070422

REACTIONS (15)
  - Product availability issue [Unknown]
  - Pyrexia [Recovered/Resolved]
  - Blood creatinine abnormal [Not Recovered/Not Resolved]
  - Incorrect dose administered [Unknown]
  - Vomiting [Recovered/Resolved]
  - Blood glucose increased [Recovering/Resolving]
  - Pneumonia [Recovered/Resolved]
  - Salmonellosis [Unknown]
  - Blood potassium abnormal [Not Recovered/Not Resolved]
  - Hypotension [Unknown]
  - Blood cholesterol abnormal [Recovering/Resolving]
  - Immunodeficiency [Recovered/Resolved]
  - Chills [Recovered/Resolved]
  - Diarrhoea [Recovered/Resolved]
  - Hypotension [Recovered/Resolved]

NARRATIVE: CASE EVENT DATE: 20180915
